FAERS Safety Report 16324142 (Version 2)
Quarter: 2019Q2

REPORT INFORMATION
  Report Type: Spontaneous
  Country: US (occurrence: US)
  Receive Date: 20190517
  Receipt Date: 20190520
  Transmission Date: 20190711
  Serious: No
  Sender: FDA-Public Use
  Company Number: US-BAYER-2019-097683

PATIENT
  Age: 51 Year
  Sex: Male
  Weight: 109 kg

DRUGS (1)
  1. MIRALAX [Suspect]
     Active Substance: POLYETHYLENE GLYCOL 3350
     Indication: GASTROINTESTINAL DISORDER
     Dosage: UNK
     Route: 048
     Dates: start: 20190506, end: 20190516

REACTIONS (3)
  - Inappropriate schedule of product administration [None]
  - Drug ineffective [Unknown]
  - Product use issue [Unknown]
